FAERS Safety Report 23614450 (Version 1)
Quarter: 2024Q1

REPORT INFORMATION
  Report Type: Report from Study
  Country: CA (occurrence: CA)
  Receive Date: 20240311
  Receipt Date: 20240311
  Transmission Date: 20240409
  Serious: Yes (Other)
  Sender: FDA-Public Use
  Company Number: CA-BoehringerIngelheim-2023-BI-222553

PATIENT
  Age: 61 Year
  Sex: Female

DRUGS (1)
  1. OFEV [Suspect]
     Active Substance: NINTEDANIB
     Indication: Idiopathic pulmonary fibrosis
     Route: 048

REACTIONS (10)
  - Pancreatic carcinoma [Unknown]
  - Metastases to liver [Unknown]
  - Metastases to spleen [Unknown]
  - Metastases to stomach [Unknown]
  - Metastases to lung [Unknown]
  - Pneumonia [Recovered/Resolved]
  - Haematochezia [Not Recovered/Not Resolved]
  - Nasopharyngitis [Not Recovered/Not Resolved]
  - Colitis microscopic [Unknown]
  - Diarrhoea [Recovering/Resolving]
